FAERS Safety Report 7416884-9 (Version None)
Quarter: 2011Q2

REPORT INFORMATION
  Report Type: 
  Country: None (occurrence: None)
  Receive Date: 20110415
  Receipt Date: 20110406
  Transmission Date: 20111010
  Serious: Yes (Other)
  Sender: FDA-Public Use
  Company Number: US-JNJFOC-20110403443

PATIENT
  Sex: Female
  Weight: 74.84 kg

DRUGS (9)
  1. DURAGESIC [Suspect]
     Indication: ARTHRALGIA
     Route: 062
  2. PERCOCET [Concomitant]
     Indication: BREAKTHROUGH PAIN
     Route: 048
  3. DURAGESIC [Suspect]
     Indication: BACK PAIN
     Route: 062
  4. DURAGESIC [Suspect]
     Route: 062
  5. DURAGESIC [Suspect]
     Route: 062
  6. UNKNOWN MEDICATION [Concomitant]
     Indication: THYROID DISORDER
     Route: 048
  7. DURAGESIC [Suspect]
     Indication: NECK PAIN
     Route: 062
  8. DURAGESIC [Suspect]
     Route: 062
  9. EFFEXOR [Concomitant]
     Indication: DEPRESSION
     Dosage: ONE THREE TIMES DAILY/
     Route: 048

REACTIONS (2)
  - PITUITARY TUMOUR [None]
  - ADDISON'S DISEASE [None]
